FAERS Safety Report 7071544-1 (Version None)
Quarter: 2010Q4

REPORT INFORMATION
  Report Type: 
  Country: None (occurrence: None)
  Receive Date: 20101029
  Receipt Date: 20090921
  Transmission Date: 20110411
  Serious: No
  Sender: FDA-Public Use
  Company Number: A0808291A

PATIENT
  Age: 18 Year
  Sex: Male

DRUGS (3)
  1. ADVAIR DISKUS 100/50 [Suspect]
     Indication: ASTHMA
     Dosage: 1PUFF TWICE PER DAY
     Route: 055
     Dates: start: 20080101
  2. ALLEGRA D 24 HOUR [Concomitant]
  3. SINGULAIR [Concomitant]

REACTIONS (3)
  - OROPHARYNGITIS FUNGAL [None]
  - THROAT IRRITATION [None]
  - THROAT LESION [None]
